FAERS Safety Report 5610691-5 (Version None)
Quarter: 2008Q1

REPORT INFORMATION
  Report Type: 
  Country: None (occurrence: None)
  Receive Date: 20080130
  Receipt Date: 20080130
  Transmission Date: 20080703
  Serious: Yes (Other)
  Sender: FDA-Public Use
  Company Number: None

PATIENT
  Sex: Female
  Weight: 56.6996 kg

DRUGS (1)
  1. LINDANE [Suspect]
     Indication: LICE INFESTATION
     Dosage: REC   SELF/OTHER   TOP
     Route: 061
     Dates: start: 20070419, end: 20070420

REACTIONS (3)
  - JOINT DISLOCATION [None]
  - MUSCLE CONTRACTIONS INVOLUNTARY [None]
  - MYOCLONUS [None]
